FAERS Safety Report 6551015-9 (Version None)
Quarter: 2010Q1

REPORT INFORMATION
  Report Type: 
  Country: None (occurrence: None)
  Receive Date: 20100125
  Receipt Date: 20100117
  Transmission Date: 20100710
  Serious: Yes (Other)
  Sender: FDA-Public Use
  Company Number: CA-AMGEN-KDL359297

PATIENT
  Sex: Female

DRUGS (3)
  1. ENBREL [Suspect]
     Indication: PSORIASIS
     Route: 058
     Dates: start: 20090706
  2. METHOTREXATE [Concomitant]
  3. VALIUM [Concomitant]

REACTIONS (7)
  - DRUG HYPERSENSITIVITY [None]
  - ECZEMA NUMMULAR [None]
  - OEDEMA [None]
  - OPEN WOUND [None]
  - PSORIASIS [None]
  - PUSTULAR PSORIASIS [None]
  - URINARY TRACT INFECTION [None]
